FAERS Safety Report 9841079 (Version 3)
Quarter: 2014Q1

REPORT INFORMATION
  Report Type: Spontaneous
  Country: FR (occurrence: FR)
  Receive Date: 20140124
  Receipt Date: 20140204
  Transmission Date: 20141002
  Serious: Yes (Death, Life-Threatening)
  Sender: FDA-Public Use
  Company Number: FR-PFIZER INC-2013353109

PATIENT
  Age: 39 Year
  Sex: Male

DRUGS (15)
  1. TRIFLUCAN [Suspect]
     Dosage: UNK
     Route: 042
     Dates: start: 20131012, end: 20131123
  2. EUPANTOL [Suspect]
     Dosage: UNK
     Route: 042
     Dates: start: 20131003
  3. BUSILVEX [Suspect]
     Indication: BONE MARROW CONDITIONING REGIMEN
     Dosage: 42 MG, 3X/DAY
     Route: 042
     Dates: start: 20131108, end: 20131111
  4. BUSILVEX [Suspect]
     Indication: TRANSPLANT
  5. THIOTEPA GENOPHARM [Suspect]
     Indication: BONE MARROW CONDITIONING REGIMEN
     Dosage: 430 MG, DAILY
     Route: 042
     Dates: start: 20131105, end: 20131107
  6. ENDOXAN [Suspect]
     Indication: BONE MARROW CONDITIONING REGIMEN
     Dosage: 3780 MG, DAILY
     Route: 042
     Dates: start: 20131112, end: 20131113
  7. MESNA [Concomitant]
     Indication: BONE MARROW CONDITIONING REGIMEN
     Dosage: UNK
  8. RIVOTRIL [Concomitant]
     Indication: BONE MARROW CONDITIONING REGIMEN
     Dosage: UNK
  9. ZOPHREN [Concomitant]
     Indication: BONE MARROW CONDITIONING REGIMEN
     Dosage: UNK
  10. INVANZ [Concomitant]
     Dosage: UNK
     Dates: start: 20131009, end: 20131021
  11. INVANZ [Concomitant]
     Dosage: UNK
     Dates: start: 20131109, end: 20131112
  12. LOVENOX [Concomitant]
     Dosage: UNK
  13. WELLVONE [Concomitant]
     Dosage: UNK
  14. BACLOFEN [Concomitant]
     Dosage: UNK
  15. PLITICAN [Concomitant]
     Dosage: UNK

REACTIONS (2)
  - Epidermolysis bullosa [Fatal]
  - Pyrexia [Not Recovered/Not Resolved]
